FAERS Safety Report 4685943-6 (Version None)
Quarter: 2005Q2

REPORT INFORMATION
  Report Type: 
  Country: None (occurrence: None)
  Receive Date: 20050607
  Receipt Date: 20050607
  Transmission Date: 20051028
  Serious: Yes (Death)
  Sender: FDA-Public Use
  Company Number: None

PATIENT
  Age: 61 Year
  Sex: Female
  Weight: 81.6475 kg

DRUGS (3)
  1. ZOCOR [Suspect]
     Indication: BLOOD CHOLESTEROL INCREASED
     Dosage: ORAL 047 ONCE A DAY
     Route: 048
     Dates: start: 19970101, end: 19980101
  2. ZOCOR [Suspect]
     Indication: BLOOD CHOLESTEROL INCREASED
     Dosage: ORAL 047 ONCE A DAY
     Route: 048
     Dates: start: 20010101, end: 20050101
  3. BAYCOL [Suspect]
     Indication: BLOOD CHOLESTEROL INCREASED
     Dosage: ORAL 047 ONCE A DAY
     Dates: start: 19980101, end: 20010101

REACTIONS (13)
  - ABASIA [None]
  - ASTHENIA [None]
  - CARDIAC DISORDER [None]
  - DIFFICULTY IN WALKING [None]
  - DYSSTASIA [None]
  - FALL [None]
  - LOWER LIMB FRACTURE [None]
  - POLYNEUROPATHY IDIOPATHIC PROGRESSIVE [None]
  - RESPIRATORY ARREST [None]
  - RESPIRATORY DISORDER [None]
  - SINUS DISORDER [None]
  - SLEEP DISORDER [None]
  - WHEELCHAIR USER [None]
